FAERS Safety Report 9765401 (Version 2)
Quarter: 2014Q4

REPORT INFORMATION
  Report Type: Spontaneous
  Country: US (occurrence: US)
  Receive Date: 20131217
  Receipt Date: 20141217
  Transmission Date: 20150529
  Serious: No
  Sender: FDA-Public Use
  Company Number: US-GLAXOSMITHKLINE-A1006981A

PATIENT

DRUGS (2)
  1. VOTRIENT [Suspect]
     Active Substance: PAZOPANIB HYDROCHLORIDE
     Indication: BONE NEOPLASM
     Dosage: 200 MG TABLET
     Route: 065
  2. VOTRIENT [Suspect]
     Active Substance: PAZOPANIB HYDROCHLORIDE
     Indication: NEOPLASM SKIN

REACTIONS (5)
  - White blood cell count decreased [Unknown]
  - Off label use [Unknown]
  - Nausea [Unknown]
  - Diarrhoea [Unknown]
  - Neutropenia [Unknown]

NARRATIVE: CASE EVENT DATE: 20120927
